FAERS Safety Report 4945160-9 (Version None)
Quarter: 2006Q1

REPORT INFORMATION
  Report Type: 
  Country: None (occurrence: None)
  Receive Date: 20060316
  Receipt Date: 20060308
  Transmission Date: 20060701
  Serious: Yes (Hospitalization, Other)
  Sender: FDA-Public Use
  Company Number: FR-JNJFOC-20031000028

PATIENT
  Sex: Male
  Weight: 68 kg

DRUGS (7)
  1. REMICADE [Suspect]
     Route: 042
  2. REMICADE [Suspect]
     Route: 042
  3. REMICADE [Suspect]
     Route: 042
  4. REMICADE [Suspect]
     Indication: CROHN'S DISEASE
     Route: 042
  5. IMUREL [Suspect]
     Indication: CROHN'S DISEASE
     Dates: start: 19920101, end: 20030801
  6. RUBOZINC [Concomitant]
     Indication: IRON DEFICIENCY
     Route: 048
     Dates: start: 20030723
  7. ADVIL [Concomitant]
     Indication: PHARYNGITIS
     Route: 048
     Dates: start: 20030729, end: 20030801

REACTIONS (4)
  - HEPATITIS [None]
  - HERPES ZOSTER [None]
  - LUNG DISORDER [None]
  - PULMONARY TUBERCULOSIS [None]
